FAERS Safety Report 6842006-9 (Version None)
Quarter: 2010Q3

REPORT INFORMATION
  Report Type: 
  Country: None (occurrence: None)
  Receive Date: 20100714
  Receipt Date: 20070719
  Transmission Date: 20110219
  Serious: No
  Sender: FDA-Public Use
  Company Number: US-PFIZER INC-2007061603

PATIENT
  Sex: Female

DRUGS (2)
  1. CHANTIX [Suspect]
  2. ZOLOFT [Concomitant]
     Indication: FIBROMYALGIA

REACTIONS (4)
  - ABNORMAL DREAMS [None]
  - FATIGUE [None]
  - NAUSEA [None]
  - SOMNOLENCE [None]
